FAERS Safety Report 24986272 (Version 1)
Quarter: 2025Q1

REPORT INFORMATION
  Report Type: Spontaneous
  Country: US (occurrence: None)
  Receive Date: 20250218
  Receipt Date: 20250218
  Transmission Date: 20250408
  Serious: Yes (Other)
  Sender: FDA-CTU
  Company Number: None

PATIENT
  Sex: Female

DRUGS (1)
  1. PROLIA [Suspect]
     Active Substance: DENOSUMAB
     Route: 058
     Dates: start: 20250105

REACTIONS (12)
  - Toothache [None]
  - Bone pain [None]
  - Hypoaesthesia [None]
  - Swelling face [None]
  - Muscle spasms [None]
  - Induration [None]
  - Gingival pain [None]
  - Headache [None]
  - Muscle spasms [None]
  - Trigeminal nerve disorder [None]
  - Nerve compression [None]
  - Sinus disorder [None]

NARRATIVE: CASE EVENT DATE: 20250105
